FAERS Safety Report 7902636-X (Version None)
Quarter: 2011Q4

REPORT INFORMATION
  Report Type: 
  Country: None (occurrence: None)
  Receive Date: 20111108
  Receipt Date: 20111102
  Transmission Date: 20120403
  Serious: Yes (Other)
  Sender: FDA-Public Use
  Company Number: US-US-EMD SERONO, INC.-7006464

PATIENT
  Sex: Female
  Weight: 52 kg

DRUGS (4)
  1. REBIF [Suspect]
     Route: 058
     Dates: start: 20100101
  2. ENABLEX [Concomitant]
     Indication: MUSCLE SPASMS
  3. REBIF [Suspect]
     Route: 058
     Dates: start: 20100101, end: 20100101
  4. REBIF [Suspect]
     Indication: MULTIPLE SCLEROSIS
     Route: 058
     Dates: start: 20100427

REACTIONS (5)
  - HYPOAESTHESIA [None]
  - BLADDER PROLAPSE [None]
  - BLADDER SPASM [None]
  - SLEEP DISORDER [None]
  - CYSTITIS [None]
